FAERS Safety Report 8556133-1 (Version None)
Quarter: 2012Q3

REPORT INFORMATION
  Report Type: 
  Country: None (occurrence: None)
  Receive Date: 20120719
  Receipt Date: 20101123
  Transmission Date: 20120928
  Serious: Yes (Other)
  Sender: FDA-Public Use
  Company Number: 2010025601

PATIENT
  Age: 44 Year
  Sex: Male

DRUGS (2)
  1. ZEMAIRA [Suspect]
     Indication: ALPHA-1 ANTI-TRYPSIN DEFICIENCY
     Dosage: 4980 MG  1X/WEEK, 4920 MG 1X/WEEK, INTRAVENOUS
     Route: 042
     Dates: start: 20090420
  2. ZEMAIRA [Suspect]
     Indication: ALPHA-1 ANTI-TRYPSIN DEFICIENCY
     Dosage: 4980 MG  1X/WEEK, 4920 MG 1X/WEEK, INTRAVENOUS
     Route: 042
     Dates: start: 20100630

REACTIONS (2)
  - INTERVERTEBRAL DISC PROTRUSION [None]
  - BACK PAIN [None]
